FAERS Safety Report 7426183-7 (Version None)
Quarter: 2011Q2

REPORT INFORMATION
  Report Type: 
  Country: None (occurrence: None)
  Receive Date: 20110420
  Receipt Date: 20110415
  Transmission Date: 20111010
  Serious: Yes (Life-Threatening, Other)
  Sender: FDA-Public Use
  Company Number: PHHY2011US32005

PATIENT
  Sex: Female

DRUGS (2)
  1. RITALIN [Suspect]
     Dosage: UNK UKN, UNK
  2. RITALIN [Suspect]
     Dosage: 10 MG, BID

REACTIONS (3)
  - GROWTH RETARDATION [None]
  - HAEMORRHAGE [None]
  - THROMBOTIC THROMBOCYTOPENIC PURPURA [None]
